FAERS Safety Report 9412061 (Version 1)
Quarter: 2013Q3

REPORT INFORMATION
  Report Type: Spontaneous
  Country: US (occurrence: US)
  Receive Date: 20130722
  Receipt Date: 20130722
  Transmission Date: 20140515
  Serious: Yes (Other)
  Sender: FDA-Public Use
  Company Number: US-009507513-2006SP008090

PATIENT
  Age: 35 Year
  Sex: Female

DRUGS (14)
  1. REBETOL [Suspect]
     Indication: HEPATITIS C
     Dosage: 1000 MG, QD
     Route: 048
     Dates: start: 200605, end: 20061009
  2. PEG-INTRON [Suspect]
     Indication: HEPATITIS C
     Dosage: 150 MICROGRAM, QW
     Dates: start: 200605, end: 20061009
  3. COUMADIN [Concomitant]
     Indication: THROMBOSIS
     Dosage: 3 MG, QD
     Route: 048
     Dates: end: 20061206
  4. VALTREX [Concomitant]
     Indication: HERPES VIRUS INFECTION
     Dosage: 1000 MG, QD
     Route: 048
     Dates: start: 20070104
  5. AMBIEN [Concomitant]
     Indication: INSOMNIA
     Dosage: 5 MG, QD
  6. VICODIN [Concomitant]
     Indication: KNEE OPERATION
     Dosage: 500 MG, QD
     Dates: start: 200404
  7. LOVENOX [Concomitant]
     Indication: THROMBOSIS
     Dosage: 140 MG, QD
     Dates: start: 20061207, end: 20070313
  8. AMOXICILLIN [Concomitant]
     Indication: SINUSITIS
     Dosage: 1500 MG, QD
     Dates: start: 20070404, end: 20070411
  9. MUCINEX [Concomitant]
     Indication: NASOPHARYNGITIS
     Dosage: UNK, PRN
     Dates: start: 20070104
  10. PHENERGAN (PROMETHAZINE HYDROCHLORIDE) [Concomitant]
     Indication: NAUSEA
     Dosage: 25 MG, QD
     Dates: start: 20070104
  11. PHENERGAN (PROMETHAZINE HYDROCHLORIDE) [Concomitant]
     Indication: VOMITING
  12. SUDAFED [Concomitant]
     Indication: NASOPHARYNGITIS
     Dosage: UNK, PRN
     Dates: start: 20070104
  13. ADVAIR [Concomitant]
     Indication: ASTHMA
     Dosage: 1 DF, BID
     Dates: start: 20070109
  14. MACROBID (CLARITHROMYCIN) [Concomitant]
     Indication: URINARY TRACT INFECTION
     Dosage: 200 MG, QD
     Dates: start: 20070404, end: 20070414

REACTIONS (3)
  - Dehydration [Unknown]
  - Vomiting [Unknown]
  - First trimester pregnancy [Recovered/Resolved]
